FAERS Safety Report 5141891-9 (Version None)
Quarter: 2006Q4

REPORT INFORMATION
  Report Type: 
  Country: None (occurrence: None)
  Receive Date: 20061026
  Receipt Date: 20060519
  Transmission Date: 20070319
  Serious: No
  Sender: FDA-Public Use
  Company Number: 2006-143189-NL

PATIENT
  Age: 32 Year
  Sex: Female

DRUGS (3)
  1. DANAPAROID SODIUM [Suspect]
     Indication: INFERTILITY
     Dosage: INTRAVENOUS DRIP
     Route: 041
     Dates: start: 20050902, end: 20050906
  2. ACETYLSALICYLIC ACID SRT [Concomitant]
  3. TOKISHAKUYAKUSAN [Concomitant]

REACTIONS (2)
  - ABORTION [None]
  - DRUG EXPOSURE DURING PREGNANCY [None]
